FAERS Safety Report 21290136 (Version 1)
Quarter: 2022Q3

REPORT INFORMATION
  Report Type: Report from Study
  Country: IN (occurrence: IN)
  Receive Date: 20220902
  Receipt Date: 20220902
  Transmission Date: 20221026
  Serious: Yes (Death)
  Sender: FDA-Public Use
  Company Number: IN-002147023-NVSC2021IN211905

PATIENT

DRUGS (2)
  1. RUXOLITINIB [Suspect]
     Active Substance: RUXOLITINIB
     Indication: Primary myelofibrosis
     Dosage: 20 MG, BID
     Route: 065
     Dates: start: 202009, end: 202106
  2. RUXOLITINIB [Suspect]
     Active Substance: RUXOLITINIB
     Dosage: 20 MG, BID
     Route: 065
     Dates: start: 20210914

REACTIONS (6)
  - Pyrexia [Unknown]
  - Full blood count decreased [Unknown]
  - Abdominal pain [Unknown]
  - Death [Fatal]
  - Oedema peripheral [Unknown]
  - Splenomegaly [Unknown]

NARRATIVE: CASE EVENT DATE: 20210914
